FAERS Safety Report 9628241 (Version 9)
Quarter: 2016Q4

REPORT INFORMATION
  Report Type: Spontaneous
  Country: PL (occurrence: PL)
  Receive Date: 20131017
  Receipt Date: 20161004
  Transmission Date: 20170207
  Serious: Yes (Death, Other)
  Sender: FDA-Public Use
  Company Number: PL-ROCHE-1289304

PATIENT
  Age: 10 Year
  Sex: Male
  Weight: 41 kg

DRUGS (6)
  1. CELLCEPT [Suspect]
     Active Substance: MYCOPHENOLATE MOFETIL\MYCOPHENOLATE MOFETIL HYDROCHLORIDE
     Indication: PROPHYLAXIS AGAINST TRANSPLANT REJECTION
     Route: 048
     Dates: start: 20130507, end: 20131003
  2. CSA [Suspect]
     Active Substance: CYCLOSPORINE
     Indication: PROPHYLAXIS AGAINST TRANSPLANT REJECTION
     Route: 048
     Dates: start: 20130507, end: 20131018
  3. MABTHERA [Suspect]
     Active Substance: RITUXIMAB
     Indication: CHRONIC ALLOGRAFT NEPHROPATHY
     Dosage: RECEIVED 4 DOSES OF RITUXIMAB
     Route: 042
     Dates: start: 20130522, end: 20130606
  4. METHYLPREDNISOLONE. [Concomitant]
     Active Substance: METHYLPREDNISOLONE
  5. COTRIMOXAZOLE [Suspect]
     Active Substance: SULFAMETHOXAZOLE\TRIMETHOPRIM
     Indication: ACUTE RESPIRATORY FAILURE
     Route: 065
  6. PREDNISONE. [Suspect]
     Active Substance: PREDNISONE
     Indication: PROPHYLAXIS AGAINST TRANSPLANT REJECTION
     Route: 050
     Dates: start: 20130507, end: 20131018

REACTIONS (2)
  - Acute respiratory failure [Fatal]
  - Pulmonary fibrosis [Unknown]

NARRATIVE: CASE EVENT DATE: 20130927
